FAERS Safety Report 7042694-0 (Version None)
Quarter: 2010Q4

REPORT INFORMATION
  Report Type: 
  Country: None (occurrence: None)
  Receive Date: 20101013
  Receipt Date: 20100524
  Transmission Date: 20110411
  Serious: No
  Sender: FDA-Public Use
  Company Number: US-ASTRAZENECA-2010SE17196

PATIENT
  Age: 64 Year
  Sex: Female
  Weight: 63.5 kg

DRUGS (8)
  1. SYMBICORT [Suspect]
     Indication: ASTHMA
     Dosage: 640 MCG
     Route: 055
     Dates: start: 20080101, end: 20100201
  2. SYMBICORT [Suspect]
     Indication: CHRONIC OBSTRUCTIVE PULMONARY DISEASE
     Dosage: 640 MCG
     Route: 055
     Dates: start: 20080101, end: 20100201
  3. SYMBICORT [Suspect]
     Indication: BRONCHOSPASM
     Dosage: 640 MCG
     Route: 055
     Dates: start: 20080101, end: 20100201
  4. ALBUTEROL [Concomitant]
  5. XANAX [Concomitant]
  6. VITAMIN D [Concomitant]
  7. CALCIUM [Concomitant]
  8. LIDODERM [Concomitant]

REACTIONS (6)
  - ANXIETY [None]
  - DRUG INTOLERANCE [None]
  - HYPERTENSION [None]
  - MYALGIA [None]
  - PALPITATIONS [None]
  - TACHYCARDIA [None]
